FAERS Safety Report 11712617 (Version 1)
Quarter: 2015Q4

REPORT INFORMATION
  Report Type: Spontaneous
  Country: US (occurrence: US)
  Receive Date: 20151104
  Receipt Date: 20151104
  Transmission Date: 20160304
  Serious: No
  Sender: FDA-Public Use
  Company Number: US-ELI_LILLY_AND_COMPANY-US201105000329

PATIENT
  Sex: Female

DRUGS (2)
  1. FORTEO [Suspect]
     Active Substance: TERIPARATIDE
     Dosage: 20 UG, QD
     Route: 065
  2. FORTEO [Suspect]
     Active Substance: TERIPARATIDE
     Indication: OSTEOPOROSIS
     Dosage: 20 UG, QD
     Dates: start: 20110419

REACTIONS (6)
  - Dizziness [Unknown]
  - Breast tenderness [Recovered/Resolved]
  - Muscle twitching [Unknown]
  - Sleep disorder due to a general medical condition [Unknown]
  - Nausea [Not Recovered/Not Resolved]
  - Erythema [Recovered/Resolved]
